FAERS Safety Report 4871594-7 (Version None)
Quarter: 2005Q4

REPORT INFORMATION
  Report Type: 
  Country: None (occurrence: None)
  Receive Date: 20051230
  Receipt Date: 20051216
  Transmission Date: 20060501
  Serious: Yes (Disabling)
  Sender: FDA-Public Use
  Company Number: 13096

PATIENT
  Age: 60 Year
  Sex: Male

DRUGS (5)
  1. METHOTREXATE [Suspect]
     Indication: RHEUMATOID ARTHRITIS
     Dosage: 15 MG WEEKLY
  2. PREDNISOLONE [Concomitant]
  3. ALENDRONIC [Concomitant]
  4. FOLIC ACID [Concomitant]
  5. CALCICHEW [Concomitant]

REACTIONS (3)
  - CATARACT [None]
  - EXTRAOCULAR MUSCLE DISORDER [None]
  - VISION BLURRED [None]
